FAERS Safety Report 23965244 (Version 1)
Quarter: 2024Q2

REPORT INFORMATION
  Report Type: Spontaneous
  Country: CN (occurrence: CN)
  Receive Date: 20240612
  Receipt Date: 20240612
  Transmission Date: 20240715
  Serious: Yes (Other)
  Sender: FDA-Public Use
  Company Number: CN-AMGEN-CHNSP2024114167

PATIENT
  Age: 62 Year
  Sex: Female
  Weight: 55 kg

DRUGS (2)
  1. PROLIA [Suspect]
     Active Substance: DENOSUMAB
     Indication: Lung neoplasm malignant
     Dosage: 60 MILLIGRAM (1)
     Route: 058
     Dates: start: 20240510, end: 20240510
  2. PROLIA [Suspect]
     Active Substance: DENOSUMAB
     Indication: Metastases to bone

REACTIONS (3)
  - Arrhythmia [Recovering/Resolving]
  - Palpitations [Recovering/Resolving]
  - Asthenia [Recovering/Resolving]

NARRATIVE: CASE EVENT DATE: 20240511
